FAERS Safety Report 19990650 (Version 1)
Quarter: 2021Q4

REPORT INFORMATION
  Report Type: Spontaneous
  Country: US (occurrence: US)
  Receive Date: 20211023
  Receipt Date: 20211023
  Transmission Date: 20220303
  Serious: No
  Sender: FDA-Public Use
  Company Number: None

PATIENT
  Age: 58 Year
  Sex: Male

DRUGS (1)
  1. CAPECITABINE [Suspect]
     Active Substance: CAPECITABINE
     Route: 048
     Dates: start: 202110

REACTIONS (4)
  - Headache [None]
  - Pneumonia [None]
  - Hypertension [None]
  - Fatigue [None]

NARRATIVE: CASE EVENT DATE: 20211022
